FAERS Safety Report 6574924-3 (Version None)
Quarter: 2010Q1

REPORT INFORMATION
  Report Type: 
  Country: None (occurrence: None)
  Receive Date: 20100201
  Receipt Date: 20100121
  Transmission Date: 20100710
  Serious: Yes (Life-Threatening, Hospitalization, Congenital Anomaly)
  Sender: FDA-Public Use
  Company Number: DSM-2010-00102

PATIENT
  Age: 2 Day

DRUGS (1)
  1. OLMESARTAN MEDOXOMIL [Suspect]
     Indication: DRUG USE FOR UNKNOWN INDICATION
     Dosage: TRANSPLACENTAL
     Route: 064
     Dates: end: 20100119

REACTIONS (6)
  - ARRHYTHMIA [None]
  - CAESAREAN SECTION [None]
  - CIRCULATORY COLLAPSE [None]
  - HYPERKALAEMIA [None]
  - MATERNAL DRUGS AFFECTING FOETUS [None]
  - RENAL FAILURE ACUTE [None]
